FAERS Safety Report 6774349-1 (Version None)
Quarter: 2010Q2

REPORT INFORMATION
  Report Type: 
  Country: None (occurrence: None)
  Receive Date: 20100617
  Receipt Date: 20100521
  Transmission Date: 20101027
  Serious: No
  Sender: FDA-Public Use
  Company Number: US-JNJFOC-20100509230

PATIENT
  Sex: Female

DRUGS (3)
  1. INVEGA [Suspect]
     Indication: SCHIZOAFFECTIVE DISORDER
     Route: 048
  2. EFFEXOR [Concomitant]
     Indication: DEPRESSION
     Route: 065
  3. COGENTIN [Concomitant]
     Indication: PROPHYLAXIS
     Route: 065

REACTIONS (3)
  - ANAEMIA [None]
  - LIVER FUNCTION TEST ABNORMAL [None]
  - OEDEMA [None]
